FAERS Safety Report 25083855 (Version 1)
Quarter: 2025Q1

REPORT INFORMATION
  Report Type: Spontaneous
  Country: US (occurrence: US)
  Receive Date: 20250317
  Receipt Date: 20250317
  Transmission Date: 20250408
  Serious: No
  Sender: CHATTEM
  Company Number: US-OPELLA-2025OHG006969

PATIENT
  Sex: Female

DRUGS (1)
  1. ALLEGRA ALLERGY [Suspect]
     Active Substance: FEXOFENADINE HYDROCHLORIDE
     Indication: Product used for unknown indication

REACTIONS (4)
  - Limb injury [Unknown]
  - Product package associated injury [Unknown]
  - Product packaging issue [Unknown]
  - Product packaging difficult to open [Unknown]
